FAERS Safety Report 25743848 (Version 1)
Quarter: 2025Q3

REPORT INFORMATION
  Report Type: Report from Study
  Country: EU (occurrence: EU)
  Receive Date: 20250831
  Receipt Date: 20250831
  Transmission Date: 20251021
  Serious: Yes (Hospitalization)
  Sender: ABBVIE
  Company Number: EU-ABBVIE-6438164

PATIENT
  Age: 68 Year
  Sex: Female
  Weight: 58 kg

DRUGS (13)
  1. RISANKIZUMAB [Suspect]
     Active Substance: RISANKIZUMAB
     Indication: Crohn^s disease
     Route: 058
     Dates: start: 20241106
  2. TENOFOVIR [Concomitant]
     Active Substance: TENOFOVIR
     Indication: Hepatitis B
     Route: 048
     Dates: start: 20240801
  3. MESALAMINE [Concomitant]
     Active Substance: MESALAMINE
     Indication: Crohn^s disease
     Route: 048
     Dates: start: 2011
  4. PANTOPRAZOLE SODIUM [Concomitant]
     Active Substance: PANTOPRAZOLE SODIUM
     Indication: Gastrointestinal disorder prophylaxis
     Route: 048
     Dates: start: 202308
  5. CALCIVIT [Concomitant]
     Indication: Osteopenia
     Route: 048
     Dates: start: 2011
  6. MAGNESIUM [Concomitant]
     Active Substance: MAGNESIUM
     Indication: Prophylaxis
     Route: 048
     Dates: start: 20240715
  7. OLANZAPINE [Concomitant]
     Active Substance: OLANZAPINE
     Indication: Depression
     Route: 048
     Dates: start: 1995
  8. PREDNISOLONE [Concomitant]
     Active Substance: PREDNISOLONE
     Indication: Crohn^s disease
     Route: 048
     Dates: start: 20241224, end: 20250130
  9. PREDNISOLONE [Concomitant]
     Active Substance: PREDNISOLONE
     Indication: Crohn^s disease
     Route: 048
     Dates: start: 20250228, end: 20250330
  10. PREDNISOLONE [Concomitant]
     Active Substance: PREDNISOLONE
     Indication: Crohn^s disease
     Route: 048
     Dates: start: 20250131, end: 20250227
  11. PREDNISOLONE [Concomitant]
     Active Substance: PREDNISOLONE
     Indication: Crohn^s disease
     Route: 048
     Dates: start: 20250610
  12. PREDNISOLONE [Concomitant]
     Active Substance: PREDNISOLONE
     Indication: Crohn^s disease
     Route: 048
     Dates: start: 20250331, end: 20250609
  13. RISANKIZUMAB [Suspect]
     Active Substance: RISANKIZUMAB
     Indication: Crohn^s disease
     Route: 042
     Dates: start: 20240813, end: 20241009

REACTIONS (1)
  - Hypertensive crisis [Recovered/Resolved]

NARRATIVE: CASE EVENT DATE: 20250610
